FAERS Safety Report 6742449-8 (Version None)
Quarter: 2010Q2

REPORT INFORMATION
  Report Type: 
  Country: None (occurrence: None)
  Receive Date: 20100526
  Receipt Date: 20100521
  Transmission Date: 20101027
  Serious: Yes (Hospitalization)
  Sender: FDA-Public Use
  Company Number: US-GILEAD-2010-0029383

PATIENT
  Sex: Female
  Weight: 107.6 kg

DRUGS (14)
  1. LETAIRIS [Suspect]
     Indication: PULMONARY ARTERIAL HYPERTENSION
     Route: 048
     Dates: start: 20091105
  2. OXYGEN [Concomitant]
  3. ASPIRIN [Concomitant]
  4. HCTZ [Concomitant]
  5. PRINIVIL [Concomitant]
  6. VERELAN [Concomitant]
  7. LIPITOR [Concomitant]
  8. LYRICA [Concomitant]
  9. FEMARA [Concomitant]
  10. GLYBURIDE [Concomitant]
  11. ALAVERT ODT [Concomitant]
  12. VITAMIN D [Concomitant]
  13. CALCIUM CARBONATE [Concomitant]
  14. POTASSIUM CHLORIDE [Concomitant]

REACTIONS (2)
  - DYSPNOEA [None]
  - TREMOR [None]
